FAERS Safety Report 23814307 (Version 1)
Quarter: 2024Q2

REPORT INFORMATION
  Report Type: Spontaneous
  Country: US (occurrence: US)
  Receive Date: 20240503
  Receipt Date: 20240503
  Transmission Date: 20240716
  Serious: Yes (Life-Threatening, Hospitalization, Other)
  Sender: FDA-Public Use
  Company Number: US-SUN PHARMACEUTICAL INDUSTRIES LTD-2024R1-444255

PATIENT
  Age: 13 Year
  Sex: Female

DRUGS (1)
  1. SERTRALINE [Suspect]
     Active Substance: SERTRALINE HYDROCHLORIDE
     Indication: Depression
     Dosage: 45-50 TABLETS
     Route: 048

REACTIONS (4)
  - Suicide attempt [Unknown]
  - Serotonin syndrome [Recovered/Resolved]
  - Conversion disorder [Unknown]
  - Generalised tonic-clonic seizure [Unknown]
